FAERS Safety Report 6961360-0 (Version None)
Quarter: 2010Q3

REPORT INFORMATION
  Report Type: 
  Country: None (occurrence: None)
  Receive Date: 20100901
  Receipt Date: 20100826
  Transmission Date: 20110219
  Serious: Yes (Hospitalization, Other)
  Sender: FDA-Public Use
  Company Number: B0671704A

PATIENT
  Sex: Female

DRUGS (6)
  1. PAROXETINE HCL [Suspect]
     Indication: PRODUCT USED FOR UNKNOWN INDICATION
     Dates: start: 20090801, end: 20100624
  2. OMEPRAZOLE [Concomitant]
     Dosage: 20MG PER DAY
     Route: 065
  3. KARDEGIC [Concomitant]
     Route: 065
  4. HYZAAR [Concomitant]
     Route: 065
  5. LASIX [Concomitant]
  6. IMOVANE [Concomitant]
     Route: 065

REACTIONS (5)
  - BRADYCARDIA [None]
  - COGNITIVE DISORDER [None]
  - HYPOKALAEMIA [None]
  - HYPOTENSION [None]
  - RESPIRATORY DISTRESS [None]
